FAERS Safety Report 5991156-8 (Version None)
Quarter: 2008Q4

REPORT INFORMATION
  Report Type: 
  Country: None (occurrence: None)
  Receive Date: 20081211
  Receipt Date: 20080424
  Transmission Date: 20090506
  Serious: No
  Sender: FDA-Public Use
  Company Number: US-AMGEN-KDL276282

PATIENT
  Sex: Male

DRUGS (2)
  1. ENBREL [Suspect]
     Indication: PSORIATIC ARTHROPATHY
     Route: 058
     Dates: start: 20050501
  2. ENBREL [Suspect]
     Indication: PSORIASIS

REACTIONS (6)
  - BLEPHARITIS [None]
  - ERYTHEMA OF EYELID [None]
  - EYE DISCHARGE [None]
  - EYE PRURITUS [None]
  - INJECTION SITE REACTION [None]
  - LACRIMATION INCREASED [None]
